FAERS Safety Report 5738033-5 (Version None)
Quarter: 2008Q2

REPORT INFORMATION
  Report Type: 
  Country: None (occurrence: None)
  Receive Date: 20080514
  Receipt Date: 20080508
  Transmission Date: 20081010
  Serious: Yes (Hospitalization, Other)
  Sender: FDA-Public Use
  Company Number: US-ELI_LILLY_AND_COMPANY-US200803002721

PATIENT
  Age: 55 Year
  Sex: Male
  Weight: 95.238 kg

DRUGS (14)
  1. BYETTA [Suspect]
     Indication: TYPE 2 DIABETES MELLITUS
     Dosage: 10 UG, 2/D
     Route: 058
     Dates: start: 20071109
  2. GLUCOPHAGE [Concomitant]
     Indication: DIABETES MELLITUS
     Dosage: 1000 MG, 2/D
  3. FISH OIL [Concomitant]
  4. NIACIN [Concomitant]
     Dosage: 1000 MG, 2/D
  5. LOPID [Concomitant]
     Dosage: 600 MG, 2/D
  6. IBUPROFEN TABLETS [Concomitant]
     Dosage: 800 MG, 3/D
  7. HYDROCHLOROTHIAZIDE [Concomitant]
     Dosage: 25 MG, DAILY (1/D)
  8. NORVASC [Concomitant]
     Dosage: 10 MG, DAILY (1/D)
  9. PRAVACHOL [Concomitant]
     Dosage: 20 MG, DAILY (1/D)
  10. LISINOPRIL [Concomitant]
     Dosage: 20 UNK, EACH MORNING
  11. LISINOPRIL [Concomitant]
     Dosage: 10 MG, EACH EVENING
  12. ULTRACET [Concomitant]
     Dosage: UNK, 3/D
  13. ZETIA [Concomitant]
     Dosage: 10 MG, DAILY (1/D)
  14. INSULIN [Concomitant]
     Indication: BLOOD GLUCOSE INCREASED
     Dosage: UNK, AS NEEDED

REACTIONS (5)
  - CHOLELITHIASIS [None]
  - DIVERTICULUM [None]
  - HEPATIC STEATOSIS [None]
  - PANCREATITIS [None]
  - WEIGHT DECREASED [None]
